FAERS Safety Report 11653406 (Version 2)
Quarter: 2015Q4

REPORT INFORMATION
  Report Type: Spontaneous
  Country: JP (occurrence: JP)
  Receive Date: 20151022
  Receipt Date: 20151201
  Transmission Date: 20160304
  Serious: Yes (Other)
  Sender: FDA-Public Use
  Company Number: JP-BAYER-2015-435540

PATIENT
  Age: 88 Year
  Sex: Female

DRUGS (20)
  1. PURSENNID [Concomitant]
     Active Substance: SENNOSIDES A AND B
     Dosage: 24 MG, PRN
     Route: 048
  2. LOXONIN [Concomitant]
     Active Substance: LOXOPROFEN SODIUM
     Dosage: 60 MG, PRN
     Route: 048
  3. LENDORMIN DAINIPPO [Concomitant]
     Active Substance: BROTIZOLAM
     Dosage: UNK, PRN
     Route: 048
  4. CELECOXIB. [Concomitant]
     Active Substance: CELECOXIB
     Dosage: 100 MG, BID
     Route: 048
  5. MUCOSTA [Concomitant]
     Active Substance: REBAMIPIDE
     Dosage: 100 MG, PRN
     Route: 048
  6. PREDNISOLONE. [Concomitant]
     Active Substance: PREDNISOLONE
     Dosage: 25 MG, OM
     Route: 048
  7. GASTEEL [Concomitant]
     Dosage: 40 MG, QD
     Route: 048
  8. MENESIT [Concomitant]
     Active Substance: CARBIDOPA\LEVODOPA
     Dosage: DAILY DOSE 6 DF
     Route: 048
  9. BILTRICIDE [Suspect]
     Active Substance: PRAZIQUANTEL
     Indication: CESTODE INFECTION
     Dosage: 900 MG, QD
     Route: 048
     Dates: start: 20150904, end: 20150904
  10. TSUMURA DAISAIKOTOU [Concomitant]
     Dosage: 2.5 G, TID
     Route: 048
  11. LAXOBERON [Concomitant]
     Active Substance: SODIUM PICOSULFATE
     Dosage: 20 ML, QD
     Route: 048
  12. EXCEGRAN [Concomitant]
     Active Substance: ZONISAMIDE
     Dosage: 50 MG, OM
     Route: 048
  13. EPADEL [Concomitant]
     Active Substance: ICOSAPENT
     Dosage: 900 MG, BID
     Route: 048
  14. GASMOTIN [Concomitant]
     Active Substance: MOSAPRIDE CITRATE
     Dosage: 5 MG, BID
     Route: 048
  15. GLUCONSAN K [Concomitant]
     Dosage: 4 G, BID
     Route: 048
  16. MAGMITT [Concomitant]
     Active Substance: MAGNESIUM OXIDE
     Dosage: 660 MG, BID
     Route: 048
  17. PURSENNID [Concomitant]
     Active Substance: SENNOSIDES A AND B
     Dosage: 24 MG, QD
     Route: 048
  18. MUCOSTA [Concomitant]
     Active Substance: REBAMIPIDE
     Dosage: 100 MG, BID
     Route: 048
  19. NIFLEC [KCL,NA BICARB,NACL,NA+ SULF ANHYDR] [Concomitant]
     Dosage: 1 DF, QD
     Route: 048
  20. TAKEPRON [Concomitant]
     Active Substance: LANSOPRAZOLE
     Dosage: 15 MG, OM
     Route: 048

REACTIONS (2)
  - Platelet count decreased [Recovered/Resolved]
  - Off label use [None]

NARRATIVE: CASE EVENT DATE: 20150930
